FAERS Safety Report 5036897-4 (Version None)
Quarter: 2006Q2

REPORT INFORMATION
  Report Type: 
  Country: None (occurrence: None)
  Receive Date: 20060628
  Receipt Date: 20060606
  Transmission Date: 20061013
  Serious: Yes (Other)
  Sender: FDA-Public Use
  Company Number: JP-GILEAD-2006-0009703

PATIENT
  Sex: Male

DRUGS (3)
  1. HEPSERA [Suspect]
     Indication: HEPATITIS B
     Route: 048
     Dates: start: 20060119, end: 20060501
  2. ZEFFIX [Suspect]
     Indication: HEPATITIS B
     Route: 048
     Dates: start: 20060216
  3. NEO-MINOPHAGEN C [Concomitant]

REACTIONS (2)
  - ALANINE AMINOTRANSFERASE INCREASED [None]
  - ASPARTATE AMINOTRANSFERASE INCREASED [None]
